FAERS Safety Report 11692524 (Version 2)
Quarter: 2016Q1

REPORT INFORMATION
  Report Type: Spontaneous
  Country: US (occurrence: US)
  Receive Date: 20151103
  Receipt Date: 20160122
  Transmission Date: 20160525
  Serious: Yes (Other)
  Sender: FDA-Public Use
  Company Number: US-PFIZER INC-2015350617

PATIENT
  Age: 58 Year
  Sex: Female
  Weight: 113 kg

DRUGS (2)
  1. IBRANCE [Suspect]
     Active Substance: PALBOCICLIB
     Dosage: 100 UNK, UNK (1-21 Q 28 DAYS)
     Route: 048
     Dates: start: 20150916
  2. IBRANCE [Suspect]
     Active Substance: PALBOCICLIB
     Indication: BREAST CANCER
     Dosage: 125 MG, CYCLIC (DAY 1-21 Q 28 DAYS)
     Route: 048
     Dates: start: 20150919

REACTIONS (6)
  - Rash [Unknown]
  - Rheumatic fever [Unknown]
  - Peripheral swelling [Unknown]
  - Pruritus [Unknown]
  - White blood cell count decreased [Recovered/Resolved]
  - Arthralgia [Unknown]

NARRATIVE: CASE EVENT DATE: 20160112
